FAERS Safety Report 9827041 (Version 1)
Quarter: 2013Q4

REPORT INFORMATION
  Report Type: Spontaneous
  Country: US (occurrence: None)
  Receive Date: 20131112
  Receipt Date: 20131112
  Transmission Date: 20140711
  Serious: Yes (Other)
  Sender: FDA-Public Use
  Company Number: FK201301724

PATIENT
  Age: 48 Year
  Sex: Male
  Weight: 90.72 kg

DRUGS (1)
  1. NAROPIN INJECTION (ROPIVACINE HYDROCHLORIDE) [Suspect]
     Indication: ROTATOR CUFF REPAIR

REACTIONS (5)
  - Pain [None]
  - Vision blurred [None]
  - Sensory disturbance [None]
  - Ear pain [None]
  - Hypoaesthesia [None]
